FAERS Safety Report 8690969 (Version 2)
Quarter: 2013Q4

REPORT INFORMATION
  Report Type: Spontaneous
  Country: FR (occurrence: FR)
  Receive Date: 20120730
  Receipt Date: 20131031
  Transmission Date: 20140711
  Serious: Yes (Hospitalization)
  Sender: FDA-Public Use
  Company Number: FR-009507513-1207FRA007142

PATIENT
  Age: 35 Year
  Sex: Female
  Weight: 80 kg

DRUGS (6)
  1. ESMERON [Suspect]
     Indication: INDUCTION OF ANAESTHESIA
     Dosage: 8 MG, UNK
  2. PROPOFOL [Concomitant]
     Indication: INDUCTION OF ANAESTHESIA
     Dosage: 180 MG,ONCE
  3. PROPOFOL [Concomitant]
     Dosage: 2 MG/KG, UNK
  4. SUFENTANIL [Concomitant]
     Indication: INDUCTION OF ANAESTHESIA
     Dosage: 20 MICROGRAM, UNK
  5. METHYLPREDNISOLONE [Concomitant]
     Indication: MYASTHENIA GRAVIS
  6. GLOBULIN, IMMUNE [Concomitant]
     Indication: MYASTHENIA GRAVIS

REACTIONS (2)
  - Incorrect drug administration rate [Recovered/Resolved]
  - Exposure during pregnancy [Recovered/Resolved]
